FAERS Safety Report 8389877-5 (Version None)
Quarter: 2012Q2

REPORT INFORMATION
  Report Type: 
  Country: None (occurrence: None)
  Receive Date: 20120521
  Receipt Date: 20120515
  Transmission Date: 20120825
  Serious: Yes (Death)
  Sender: FDA-Public Use
  Company Number: DSA_57089_2012

PATIENT
  Sex: Male

DRUGS (1)
  1. XENAZINE [Suspect]
     Indication: DYSKINESIA
     Dosage: 62.5 MG, DAILY, ORAL
     Route: 048
     Dates: start: 20110312, end: 20120423

REACTIONS (1)
  - DEATH [None]
